FAERS Safety Report 24991445 (Version 1)
Quarter: 2025Q1

REPORT INFORMATION
  Report Type: Spontaneous
  Country: US (occurrence: US)
  Receive Date: 20250220
  Receipt Date: 20250220
  Transmission Date: 20250408
  Serious: No
  Sender: ARCUTIS
  Company Number: US-ARCUTIS BIOTHERAPEUTICS INC-2024AER000356

PATIENT
  Age: 50 Year
  Sex: Male

DRUGS (3)
  1. ZORYVE [Suspect]
     Active Substance: ROFLUMILAST
     Indication: Psoriasis
     Dosage: UNK, QD
     Route: 061
  2. ZORYVE [Suspect]
     Active Substance: ROFLUMILAST
     Route: 061
  3. ZORYVE [Suspect]
     Active Substance: ROFLUMILAST
     Route: 061

REACTIONS (4)
  - Diarrhoea [Recovered/Resolved]
  - Nausea [Recovered/Resolved]
  - Headache [Recovered/Resolved]
  - Off label use [Unknown]
